FAERS Safety Report 19307577 (Version 2)
Quarter: 2021Q4

REPORT INFORMATION
  Report Type: Spontaneous
  Country: GB (occurrence: GB)
  Receive Date: 20210526
  Receipt Date: 20211130
  Transmission Date: 20220303
  Serious: Yes (Other)
  Sender: FDA-Public Use
  Company Number: None

PATIENT
  Age: 83 Year
  Sex: Male
  Weight: 68.03 kg

DRUGS (5)
  1. FINASTERIDE [Suspect]
     Active Substance: FINASTERIDE
     Indication: Prostatomegaly
     Dosage: 5MG DAILY
     Route: 048
     Dates: start: 20200920, end: 20210301
  2. ADCAL [Concomitant]
     Indication: Ill-defined disorder
  3. ATORVASTATIN CALCIUM [Concomitant]
     Active Substance: ATORVASTATIN CALCIUM
     Indication: Ill-defined disorder
  4. FUROSEMIDE [Concomitant]
     Active Substance: FUROSEMIDE
     Indication: Ill-defined disorder
  5. EDOXABAN TOSYLATE [Concomitant]
     Active Substance: EDOXABAN TOSYLATE
     Indication: Ill-defined disorder

REACTIONS (3)
  - Disorientation [Unknown]
  - Confusional state [Recovered/Resolved with Sequelae]
  - Hallucination [Unknown]

NARRATIVE: CASE EVENT DATE: 20200923
